FAERS Safety Report 8091104-3 (Version None)
Quarter: 2012Q1

REPORT INFORMATION
  Report Type: 
  Country: None (occurrence: None)
  Receive Date: 20120129
  Receipt Date: 20111020
  Transmission Date: 20120608
  Serious: No
  Sender: FDA-Public Use
  Company Number: US-ABBOTT-11P-163-0867034-00

PATIENT
  Age: 48 Year
  Sex: Female

DRUGS (6)
  1. HUMIRA [Suspect]
     Indication: ANKYLOSING SPONDYLITIS
     Dates: start: 20111005
  2. TAMOXIFEN CITRATE [Concomitant]
     Indication: BREAST HYPERPLASIA
     Dates: start: 20110707, end: 20110712
  3. CALTRATE WITH VITAMIN D [Concomitant]
     Indication: VITAMIN D DEFICIENCY
  4. PRILOSEC [Concomitant]
     Indication: GASTROOESOPHAGEAL REFLUX DISEASE
  5. PILOCARPINE [Concomitant]
     Indication: DRY MOUTH
  6. PILOCARPINE [Concomitant]
     Indication: THERMAL BURN

REACTIONS (4)
  - FEELING HOT [None]
  - FLUSHING [None]
  - HYPERHIDROSIS [None]
  - HEADACHE [None]
